FAERS Safety Report 7800365-4 (Version None)
Quarter: 2011Q4

REPORT INFORMATION
  Report Type: 
  Country: None (occurrence: None)
  Receive Date: 20111006
  Receipt Date: 20110928
  Transmission Date: 20120403
  Serious: No
  Sender: FDA-Public Use
  Company Number: US-B.I. PHARMACEUTICALS,INC./RIDGEFIELD-2011-BP-23106BP

PATIENT

DRUGS (2)
  1. PRADAXA [Suspect]
     Dosage: 150 MG
     Route: 048
  2. TIKOSYN [Concomitant]
     Indication: ATRIAL FIBRILLATION

REACTIONS (2)
  - FATIGUE [None]
  - ACTIVATED PARTIAL THROMBOPLASTIN TIME ABNORMAL [None]
